FAERS Safety Report 11838714 (Version 1)
Quarter: 2015Q4

REPORT INFORMATION
  Report Type: Spontaneous
  Country: US (occurrence: US)
  Receive Date: 20151215
  Receipt Date: 20151215
  Transmission Date: 20160305
  Serious: No
  Sender: FDA-Public Use
  Company Number: US-SA-2014SA175525

PATIENT
  Age: 66 Year
  Sex: Female

DRUGS (1)
  1. FERRLECIT [Suspect]
     Active Substance: SODIUM FERRIC GLUCONATE COMPLEX
     Indication: BLOOD IRON DECREASED
     Route: 065
     Dates: start: 20141212, end: 20141212

REACTIONS (7)
  - Swollen tongue [Unknown]
  - Lip swelling [Unknown]
  - Injection site swelling [Unknown]
  - Hypotension [Unknown]
  - Abdominal discomfort [Unknown]
  - Myalgia [Unknown]
  - Swelling face [Unknown]

NARRATIVE: CASE EVENT DATE: 20141212
